FAERS Safety Report 7442305-6 (Version None)
Quarter: 2011Q2

REPORT INFORMATION
  Report Type: 
  Country: None (occurrence: None)
  Receive Date: 20110428
  Receipt Date: 20110420
  Transmission Date: 20111010
  Serious: Yes (Life-Threatening, Hospitalization)
  Sender: FDA-Public Use
  Company Number: FR-SANOFI-AVENTIS-2011SA024429

PATIENT
  Age: 29 Year
  Sex: Male

DRUGS (6)
  1. ZOLPIDEM WINTHROP [Suspect]
     Indication: INSOMNIA
     Route: 048
     Dates: start: 20110202, end: 20110209
  2. AMOXICILLINE WINTHROP [Suspect]
     Route: 048
     Dates: start: 20110202, end: 20110209
  3. NAPROXEN [Suspect]
     Indication: TORTICOLLIS
     Route: 048
     Dates: start: 20110124, end: 20110128
  4. TETRAZEPAM WINTHROP [Suspect]
     Indication: TORTICOLLIS
     Route: 048
     Dates: start: 20110124, end: 20110128
  5. ACETAMINOPHEN [Suspect]
     Indication: TORTICOLLIS
     Route: 048
     Dates: start: 20110124, end: 20110131
  6. PREDNISOLONE WINTHROP [Suspect]
     Route: 048
     Dates: start: 20110202, end: 20110206

REACTIONS (1)
  - STEVENS-JOHNSON SYNDROME [None]
